FAERS Safety Report 26026121 (Version 1)
Quarter: 2025Q4

REPORT INFORMATION
  Report Type: Report from Study
  Country: JP (occurrence: JP)
  Receive Date: 20251111
  Receipt Date: 20251111
  Transmission Date: 20260118
  Serious: Yes (Hospitalization)
  Sender: ABBVIE
  Company Number: JP-ABBVIE-6534127

PATIENT
  Age: 64 Year
  Sex: Male
  Weight: 46.9 kg

DRUGS (8)
  1. RISANKIZUMAB [Suspect]
     Active Substance: RISANKIZUMAB
     Indication: Crohn^s disease
     Route: 058
     Dates: start: 20240807, end: 20250709
  2. RISANKIZUMAB [Suspect]
     Active Substance: RISANKIZUMAB
     Indication: Crohn^s disease
     Route: 042
     Dates: start: 20240508, end: 20240709
  3. MESALAMINE [Concomitant]
     Active Substance: MESALAMINE
     Indication: Crohn^s disease
     Dosage: TIME INTERVAL: 0.33333333 DAYS
     Route: 048
     Dates: start: 20101116
  4. BUTYRIC ACID [Concomitant]
     Active Substance: BUTYRIC ACID
     Indication: Gastrointestinal disorder
     Dosage: TIME INTERVAL: 0.33333333 DAYS
     Route: 048
     Dates: start: 20101116
  5. AMINO ACIDS\CARBOHYDRATES\MINERALS\SOYBEAN OIL\VITAMINS [Concomitant]
     Active Substance: AMINO ACIDS\CARBOHYDRATES\MINERALS\SOYBEAN OIL\VITAMINS
     Indication: Nutritional supplementation
     Dosage: COMBINATION POWDER
     Route: 048
     Dates: start: 20241117
  6. LOXOPROFEN SODIUM DIHYDRATE [Concomitant]
     Active Substance: LOXOPROFEN SODIUM DIHYDRATE
     Indication: Procedural pain
     Route: 048
     Dates: start: 20240813
  7. BETAMETHASONE SODIUM PHOSPHATE [Concomitant]
     Active Substance: BETAMETHASONE SODIUM PHOSPHATE
     Indication: Uveitis
     Dosage: APPROPRIATE AMOUNT
     Dates: start: 20241125
  8. LEVOFLOXACIN HEMIHYDRATE [Concomitant]
     Active Substance: LEVOFLOXACIN
     Indication: Uveitis
     Dosage: APPROPRIATE AMOUNT
     Dates: start: 20241125

REACTIONS (1)
  - Jaundice cholestatic [Recovered/Resolved with Sequelae]

NARRATIVE: CASE EVENT DATE: 20251015
